FAERS Safety Report 11659840 (Version 1)
Quarter: 2015Q4

REPORT INFORMATION
  Report Type: Spontaneous
  Country: US (occurrence: None)
  Receive Date: 20151023
  Receipt Date: 20151023
  Transmission Date: 20160304
  Serious: Yes (Other)
  Sender: FDA-Public Use
  Company Number: None

PATIENT

DRUGS (3)
  1. LISINOPRIL. [Concomitant]
     Active Substance: LISINOPRIL
  2. MULTIVITAMIN [Concomitant]
     Active Substance: VITAMINS
  3. ENBREL [Suspect]
     Active Substance: ETANERCEPT
     Indication: ANKYLOSING SPONDYLITIS
     Dosage: 1 PFS?WEEKLY ?SUBCUTANEOUS
     Route: 058

REACTIONS (2)
  - Uveitis [None]
  - Cataract [None]

NARRATIVE: CASE EVENT DATE: 20151022
